FAERS Safety Report 14654705 (Version 2)
Quarter: 2018Q2

REPORT INFORMATION
  Report Type: Spontaneous
  Country: US (occurrence: US)
  Receive Date: 20180319
  Receipt Date: 20180508
  Transmission Date: 20180711
  Serious: No
  Sender: FDA-Public Use
  Company Number: US-CELLTRION INC.-2017US012599

PATIENT

DRUGS (4)
  1. INFLECTRA [Suspect]
     Active Substance: INFLIXIMAB-DYYB
     Dosage: 710 MG Q 8 WEEKS AFTER LOADING/710 MG AT 0,2,6 AND THEN 8 WEEKS
     Route: 065
     Dates: start: 20171114, end: 20171114
  2. INFLECTRA [Suspect]
     Active Substance: INFLIXIMAB-DYYB
     Indication: ANKYLOSING SPONDYLITIS
     Dosage: 710 MG Q 8 WEEKS AFTER LOADING/710 MG AT 0,2,6 AND THEN 8 WEEKS
     Route: 065
  3. INFLECTRA [Suspect]
     Active Substance: INFLIXIMAB-DYYB
     Dosage: 710 MG Q 8 WEEKS AFTER LOADING/710 MG AT 0,2,6 AND THEN 8 WEEKS
     Route: 065
     Dates: start: 20171003, end: 20171003
  4. INFLECTRA [Suspect]
     Active Substance: INFLIXIMAB-DYYB
     Dosage: 710 MG, (Q 8 WEEKS AFTER LOADING /0,2,6 AND THEN 8 WEEKS)
     Route: 065
     Dates: start: 20180306, end: 20180306

REACTIONS (1)
  - Drug prescribing error [Unknown]
